FAERS Safety Report 6331534-0 (Version None)
Quarter: 2009Q3

REPORT INFORMATION
  Report Type: 
  Country: None (occurrence: None)
  Receive Date: 20090827
  Receipt Date: 20090819
  Transmission Date: 20100115
  Serious: Yes (Other)
  Sender: FDA-Public Use
  Company Number: US-AMGEN-QUU359009

PATIENT
  Sex: Female
  Weight: 137.1 kg

DRUGS (9)
  1. ENBREL [Suspect]
     Indication: ANKYLOSING SPONDYLITIS
     Route: 058
     Dates: start: 20090512, end: 20090526
  2. IBUPROFEN [Concomitant]
  3. EXCEDRIN [Concomitant]
  4. FLEXERIL [Concomitant]
  5. IMITREX [Concomitant]
  6. PERCOCET [Concomitant]
  7. TYLENOL (CAPLET) [Concomitant]
  8. AMITRIPTYLINE [Concomitant]
  9. NEURONTIN [Concomitant]

REACTIONS (16)
  - ANKYLOSING SPONDYLITIS [None]
  - BACK PAIN [None]
  - DRUG HYPERSENSITIVITY [None]
  - ERYTHEMA [None]
  - INJECTION SITE ERYTHEMA [None]
  - INJECTION SITE PRURITUS [None]
  - INJECTION SITE SWELLING [None]
  - INJECTION SITE WARMTH [None]
  - INSOMNIA [None]
  - JOINT SWELLING [None]
  - LIP SWELLING [None]
  - OEDEMA PERIPHERAL [None]
  - PALPITATIONS [None]
  - PARAESTHESIA ORAL [None]
  - PRURITUS [None]
  - SWELLING FACE [None]
